FAERS Safety Report 6144011-7 (Version None)
Quarter: 2009Q2

REPORT INFORMATION
  Report Type: 
  Country: None (occurrence: None)
  Receive Date: 20090406
  Receipt Date: 20090325
  Transmission Date: 20091009
  Serious: Yes (Hospitalization)
  Sender: FDA-Public Use
  Company Number: FR-BRISTOL-MYERS SQUIBB COMPANY-14061071

PATIENT
  Age: 45 Year
  Sex: Male

DRUGS (1)
  1. ABATACEPT [Suspect]
     Indication: CROHN'S DISEASE
     Route: 042
     Dates: start: 20080116

REACTIONS (2)
  - ANAL ABSCESS [None]
  - FURUNCLE [None]
